FAERS Safety Report 10062450 (Version 4)
Quarter: 2017Q4

REPORT INFORMATION
  Report Type: Report from Study
  Country: US (occurrence: US)
  Receive Date: 20140407
  Receipt Date: 20171013
  Transmission Date: 20180320
  Serious: Yes (Hospitalization, Other)
  Sender: FDA-Public Use
  Company Number: US-SA-LEUK-1000219

PATIENT
  Sex: Male
  Weight: 104.8 kg

DRUGS (36)
  1. IPILIMUMAB [Suspect]
     Active Substance: IPILIMUMAB
     Indication: MALIGNANT MELANOMA
     Dosage: 10 MG/KG, ONCE
     Route: 042
     Dates: start: 20110913, end: 20110913
  2. ENOXAPARIN SODIUM. [Concomitant]
     Active Substance: ENOXAPARIN SODIUM
     Dosage: 40 MG, QD
     Route: 059
  3. FAMOTIDINE. [Concomitant]
     Active Substance: FAMOTIDINE
     Dosage: 20 MG, QD
     Route: 048
  4. GENTAMICIN SULFATE. [Concomitant]
     Active Substance: GENTAMICIN SULFATE
     Dosage: 1-2 DROPS EACH EYE, Q4HR
     Route: 047
  5. LORAZEPAM. [Concomitant]
     Active Substance: LORAZEPAM
     Indication: ANXIETY
     Dosage: 1 MG, UNK
     Route: 048
  6. SODIUM CHLORIDE. [Concomitant]
     Active Substance: SODIUM CHLORIDE
     Dosage: 1000 ML, Q1HR
     Route: 042
  7. SARGRAMOSTIM [Suspect]
     Active Substance: SARGRAMOSTIM
     Indication: MALIGNANT MELANOMA
     Dosage: 250 MCG/DAY, ON DAY 1-14
     Route: 058
     Dates: end: 20111111
  8. PREDNISONE. [Concomitant]
     Active Substance: PREDNISONE
     Dosage: 5 MG, UNK, SD ONE
     Route: 048
  9. IPILIMUMAB [Suspect]
     Active Substance: IPILIMUMAB
     Indication: MALIGNANT MELANOMA
     Dosage: 10 MG/KG, ONCE
     Route: 042
     Dates: start: 20110802, end: 20110802
  10. OMEPRAZOLE. [Concomitant]
     Active Substance: OMEPRAZOLE
     Dosage: 20 MG, BID
     Route: 048
     Dates: end: 20120618
  11. TRIMETHOPRIM SULFATE/POLYMYXIN B SULFATE [Concomitant]
     Dosage: 1 DROP EACH EYE, Q3HR
     Route: 047
  12. SODIUM CHLORIDE. [Concomitant]
     Active Substance: SODIUM CHLORIDE
     Dosage: 1000 ML, Q10HR
     Route: 042
  13. SARGRAMOSTIM [Suspect]
     Active Substance: SARGRAMOSTIM
     Indication: MALIGNANT MELANOMA
     Dosage: 250 MCG, QD
     Route: 058
     Dates: start: 20110913, end: 20110926
  14. SARGRAMOSTIM [Suspect]
     Active Substance: SARGRAMOSTIM
     Indication: MALIGNANT MELANOMA
     Dosage: 250 MCG, QD
     Route: 058
     Dates: start: 20110823, end: 20110905
  15. SARGRAMOSTIM [Suspect]
     Active Substance: SARGRAMOSTIM
     Indication: MALIGNANT MELANOMA
     Dosage: 250 MCG, QD
     Route: 058
     Dates: start: 20110802, end: 20110815
  16. IPILIMUMAB [Suspect]
     Active Substance: IPILIMUMAB
     Indication: MALIGNANT MELANOMA
     Dosage: 10 MG/KG, ONCE
     Route: 042
     Dates: start: 20111004, end: 20111004
  17. IPILIMUMAB [Suspect]
     Active Substance: IPILIMUMAB
     Indication: MALIGNANT MELANOMA
     Dosage: 10 MG/KG, 90 MINUTES ON DAY 1, Q12 WEEKS?TOTAL DOSE ADMINISTERED: 917 MG
     Route: 042
     Dates: start: 20120612, end: 20120612
  18. HYDROMORPHONE [Concomitant]
     Active Substance: HYDROMORPHONE
  19. ZOLPIDEM TARTRATE. [Concomitant]
     Active Substance: ZOLPIDEM TARTRATE
     Dosage: 10 MG, UNK
     Route: 048
  20. FAMOTIDINE. [Concomitant]
     Active Substance: FAMOTIDINE
     Dosage: 20 MG, ONCE
     Route: 042
  21. SODIUM CHLORIDE. [Concomitant]
     Active Substance: SODIUM CHLORIDE
     Dosage: 1000 ML, Q1HR
     Route: 042
  22. SARGRAMOSTIM [Suspect]
     Active Substance: SARGRAMOSTIM
     Indication: MALIGNANT MELANOMA
     Dosage: 250 MCG, QD
     Route: 058
     Dates: start: 20111004, end: 20111018
  23. LORAZEPAM. [Concomitant]
     Active Substance: LORAZEPAM
     Indication: INSOMNIA
     Dosage: 1 MG, UNK
     Route: 048
  24. OXYCODONE HYDROCHLORIDE. [Concomitant]
     Active Substance: OXYCODONE HYDROCHLORIDE
     Dosage: 5-10 MG, Q6HR
     Route: 048
  25. OXYCODONE HYDROCHLORIDE. [Concomitant]
     Active Substance: OXYCODONE HYDROCHLORIDE
     Dosage: 5 MG, Q4HR
     Route: 048
     Dates: end: 20120617
  26. PREDNISONE. [Concomitant]
     Active Substance: PREDNISONE
     Dosage: UNK, LOW DOSE
     Route: 065
     Dates: start: 20120619
  27. IPILIMUMAB [Suspect]
     Active Substance: IPILIMUMAB
     Indication: MALIGNANT MELANOMA
     Dosage: 10 MG/KG, ONCE
     Route: 042
     Dates: start: 20110823, end: 20110823
  28. CORTICOTROPIN [Concomitant]
     Active Substance: CORTICOTROPIN
     Dosage: 250 MCG, UNK, SD ONE
     Route: 042
  29. DOCUSATE SODIUM. [Concomitant]
     Active Substance: DOCUSATE SODIUM
     Dosage: 100 MG, BID
     Route: 048
  30. NAPHAZOLINE HYDROCHLORIDE/PHENIRAMINE MALEATE [Concomitant]
     Dosage: 1-2 DROPS EACH EYE, 28 HOURS
     Route: 047
  31. FAMOTIDINE. [Concomitant]
     Active Substance: FAMOTIDINE
     Dosage: 20 MG, ONCE
     Route: 042
  32. IPILIMUMAB [Suspect]
     Active Substance: IPILIMUMAB
     Indication: MALIGNANT MELANOMA
     Route: 042
  33. CLOBETASOL [Concomitant]
     Active Substance: CLOBETASOL
     Dosage: ONE APPLICATION
     Route: 061
  34. DIPHENHYDRAMINE HYDROCHLORIDE. [Concomitant]
     Active Substance: DIPHENHYDRAMINE HYDROCHLORIDE
     Dosage: 25 MG, UNK, SD ONE
     Route: 048
  35. ONDANSETRON HYDROCHLORIDE. [Concomitant]
     Active Substance: ONDANSETRON HYDROCHLORIDE
     Dosage: 4 MG, Q8HR
     Route: 042
  36. FAMOTIDINE. [Concomitant]
     Active Substance: FAMOTIDINE
     Dosage: 50 MG, 100ML/ HR
     Route: 042

REACTIONS (39)
  - Myocardial infarction [Unknown]
  - Aspartate aminotransferase increased [Recovered/Resolved]
  - Alanine aminotransferase increased [Recovered/Resolved]
  - Rhinorrhoea [Unknown]
  - Cough [Unknown]
  - Vomiting [Unknown]
  - Abdominal pain [Recovered/Resolved]
  - Pneumonia [Unknown]
  - Abdominal pain [Unknown]
  - Anxiety [Unknown]
  - Blood alkaline phosphatase increased [Recovered/Resolved]
  - Abdominal pain [Unknown]
  - Transaminases increased [Unknown]
  - Alanine aminotransferase increased [Unknown]
  - Dyspnoea [Recovered/Resolved]
  - Sinus congestion [Unknown]
  - Malaise [Unknown]
  - Headache [Unknown]
  - Blood bilirubin increased [Not Recovered/Not Resolved]
  - Abdominal pain [Recovered/Resolved]
  - Hepatic steatosis [Unknown]
  - Abdominal pain [Recovered/Resolved]
  - Aspartate aminotransferase increased [Unknown]
  - Nausea [Not Recovered/Not Resolved]
  - Dizziness [Unknown]
  - Alanine aminotransferase increased [Not Recovered/Not Resolved]
  - Syncope [Unknown]
  - Hypotension [Unknown]
  - Metastatic malignant melanoma [Unknown]
  - Enterocolitis [Unknown]
  - Aspartate aminotransferase increased [Not Recovered/Not Resolved]
  - Abdominal pain [Recovered/Resolved]
  - Lung disorder [Unknown]
  - Adrenal insufficiency [Unknown]
  - Sinus tachycardia [Unknown]
  - Pulmonary oedema [Unknown]
  - Angina unstable [Unknown]
  - Cholecystitis [Recovered/Resolved]
  - Fatigue [Recovered/Resolved]

NARRATIVE: CASE EVENT DATE: 20111020
